FAERS Safety Report 10166968 (Version 1)
Quarter: 2014Q2

REPORT INFORMATION
  Report Type: Spontaneous
  Country: US (occurrence: US)
  Receive Date: 20140512
  Receipt Date: 20140512
  Transmission Date: 20141212
  Serious: No
  Sender: FDA-Public Use
  Company Number: US-PFIZER INC-2014129698

PATIENT
  Age: 36 Year
  Sex: Female
  Weight: 80.73 kg

DRUGS (1)
  1. ALPRAZOLAM [Suspect]
     Indication: ANXIETY
     Dosage: 1 MG, AS NEEDED
     Dates: start: 1999

REACTIONS (2)
  - Product quality issue [Recovered/Resolved]
  - Hypersensitivity [Recovered/Resolved]
